FAERS Safety Report 10589813 (Version 1)
Quarter: 2014Q4

REPORT INFORMATION
  Report Type: Spontaneous
  Country: US (occurrence: None)
  Receive Date: 20141117
  Receipt Date: 20141117
  Transmission Date: 20150529
  Serious: No
  Sender: FDA-Public Use
  Company Number: None

PATIENT
  Age: 56 Year
  Sex: Male
  Weight: 117.94 kg

DRUGS (1)
  1. AXIRON [Suspect]
     Active Substance: TESTOSTERONE
     Indication: BLOOD TESTOSTERONE DECREASED
     Dosage: APPLIED TO A SURFACE, USUALLY THE SKIN
     Dates: start: 20141002, end: 20141115

REACTIONS (4)
  - Product substitution issue [None]
  - Discomfort [None]
  - Burning sensation [None]
  - Reaction to drug excipients [None]

NARRATIVE: CASE EVENT DATE: 20141115
